FAERS Safety Report 9626661 (Version 1)
Quarter: 2013Q4

REPORT INFORMATION
  Report Type: Spontaneous
  Country: US (occurrence: US)
  Receive Date: 20131016
  Receipt Date: 20131016
  Transmission Date: 20140711
  Serious: No
  Sender: FDA-Public Use
  Company Number: US-PFIZER INC-2013294058

PATIENT
  Age: 64 Year
  Sex: Female

DRUGS (6)
  1. FELDENE [Suspect]
     Dosage: UNK
  2. NEOSPORIN [Suspect]
     Dosage: UNK
  3. REDUX [Suspect]
     Dosage: UNK
  4. ANAPROX [Suspect]
     Dosage: UNK
  5. PROZAC [Suspect]
     Dosage: UNK
  6. ASPIRIN [Suspect]
     Dosage: UNK

REACTIONS (1)
  - Drug hypersensitivity [Unknown]
